FAERS Safety Report 4561012-0 (Version None)
Quarter: 2005Q1

REPORT INFORMATION
  Report Type: 
  Country: None (occurrence: None)
  Receive Date: 20050126
  Receipt Date: 20040723
  Transmission Date: 20050727
  Serious: No
  Sender: FDA-Public Use
  Company Number: US-BRISTOL-MYERS SQUIBB COMPANY-12648960

PATIENT

DRUGS (2)
  1. GLUCOPHAGE [Suspect]
  2. AMARYL [Concomitant]

REACTIONS (1)
  - BLOOD GLUCOSE INCREASED [None]
